FAERS Safety Report 5441260-8 (Version None)
Quarter: 2007Q3

REPORT INFORMATION
  Report Type: 
  Country: None (occurrence: None)
  Receive Date: 20070901
  Receipt Date: 20070821
  Transmission Date: 20080115
  Serious: Yes (Other)
  Sender: FDA-Public Use
  Company Number: US-PFIZER INC-2007071491

PATIENT
  Sex: Female
  Weight: 54.4 kg

DRUGS (8)
  1. CHANTIX [Suspect]
     Indication: SMOKING CESSATION THERAPY
  2. PREDNISONE [Suspect]
     Indication: RESPIRATORY DISORDER
     Route: 042
     Dates: start: 20070808, end: 20070811
  3. PREDNISONE [Suspect]
     Route: 048
     Dates: start: 20070811, end: 20070818
  4. HALCION [Concomitant]
  5. NEURONTIN [Concomitant]
  6. CELEBREX [Concomitant]
  7. OXYCODONE HCL [Concomitant]
  8. OXYGEN [Concomitant]

REACTIONS (3)
  - BLOOD GLUCOSE INCREASED [None]
  - HEADACHE [None]
  - INSOMNIA [None]
